FAERS Safety Report 12557379 (Version 1)
Quarter: 2016Q3

REPORT INFORMATION
  Report Type: Spontaneous
  Country: US (occurrence: US)
  Receive Date: 20160714
  Receipt Date: 20160714
  Transmission Date: 20161109
  Serious: No
  Sender: FDA-Public Use
  Company Number: US-ALKEM LABORATORIES LIMITED-US-ALKEM-2016-00047

PATIENT
  Sex: Female

DRUGS (1)
  1. LINEZOLID. [Suspect]
     Active Substance: LINEZOLID
     Indication: LUNG ABSCESS
     Dosage: UNKNOWN

REACTIONS (3)
  - Hypoaesthesia oral [Unknown]
  - Neuropathy peripheral [Unknown]
  - Bone marrow failure [Unknown]
